FAERS Safety Report 5133002-0 (Version None)
Quarter: 2006Q4

REPORT INFORMATION
  Report Type: 
  Country: None (occurrence: None)
  Receive Date: 20061017
  Receipt Date: 20061006
  Transmission Date: 20070319
  Serious: Yes (Life-Threatening, Hospitalization)
  Sender: FDA-Public Use
  Company Number: GXKR2006GB06254

PATIENT
  Age: 36 Year
  Sex: Female
  Weight: 70 kg

DRUGS (7)
  1. CEFUROXIME [Suspect]
     Dosage: INTRAVENOUS
     Route: 042
  2. FENTANYL [Suspect]
     Dosage: INTRAVENOUS
     Route: 042
  3. LIDOCAINE [Suspect]
     Dosage: INTRADERMAL
     Route: 023
  4. PROPOFOL [Suspect]
     Dosage: INTRAVENOUS
     Route: 042
  5. ROCURONIUM (ROCURONIUM) [Suspect]
     Indication: ANAESTHESIA
     Dosage: 35 MG, INTRAVENOUS
     Route: 042
     Dates: start: 20060918, end: 20060918
  6. LEVOTHYROXINE SODIUM [Concomitant]
  7. CONTRACEPTIVES (CONTRACEPTIVES) [Concomitant]

REACTIONS (2)
  - BRONCHOSPASM [None]
  - CIRCULATORY COLLAPSE [None]
